FAERS Safety Report 26177274 (Version 1)
Quarter: 2025Q4

REPORT INFORMATION
  Report Type: Spontaneous
  Country: US (occurrence: US)
  Receive Date: 20251219
  Receipt Date: 20251219
  Transmission Date: 20260118
  Serious: No
  Sender: ALVOGEN
  Company Number: US-ALVOGEN-2025096317

PATIENT
  Sex: Female

DRUGS (8)
  1. FENTANYL [Suspect]
     Active Substance: FENTANYL
     Indication: Fibromyalgia
     Dosage: STARTED PROBABLY PAST 4 OR 5 YEARS AGO?100 MCG/H FOR 2 DAYS?EVERY MONTH GOT 3 BOXES
  2. FENTANYL [Suspect]
     Active Substance: FENTANYL
     Indication: Fibromyalgia
     Dosage: LAST MONTH BOX?EXP: MAY-2027?100 MCG/H FOR 2 DAYS
     Dates: start: 202501
  3. FENTANYL [Suspect]
     Active Substance: FENTANYL
     Indication: Fibromyalgia
     Dosage: CURRENT BOX?EXP: JUL-2027?100 MCG/H FOR 2 DAYS
     Dates: start: 202502
  4. HYDROMORPHONE [Concomitant]
     Active Substance: HYDROMORPHONE
     Indication: Product used for unknown indication
  5. ATORVASTATIN [Concomitant]
     Active Substance: ATORVASTATIN
     Indication: Product used for unknown indication
  6. ZOLPIDEM [Concomitant]
     Active Substance: ZOLPIDEM TARTRATE
     Indication: Product used for unknown indication
     Dosage: AT NIGHT
  7. VITAMIN D3 [Concomitant]
     Active Substance: CHOLECALCIFEROL
     Indication: Product used for unknown indication
  8. VITAMIN B12 [Concomitant]
     Active Substance: CYANOCOBALAMIN
     Indication: Product used for unknown indication
     Dosage: SHOT EVERY WEEK

REACTIONS (6)
  - Device malfunction [Unknown]
  - Device defective [Unknown]
  - Device issue [Unknown]
  - Device physical property issue [Unknown]
  - Product packaging quantity issue [Unknown]
  - No adverse event [Unknown]
